FAERS Safety Report 9334374 (Version 1)
Quarter: 2013Q2

REPORT INFORMATION
  Report Type: Report from Study
  Country: TW (occurrence: TW)
  Receive Date: 20130606
  Receipt Date: 20130606
  Transmission Date: 20140414
  Serious: Yes (Hospitalization)
  Sender: FDA-Public Use
  Company Number: PHHO2010TW14259

PATIENT
  Age: 21 Year
  Sex: Male
  Weight: 112 kg

DRUGS (10)
  1. BLINDED ALISKIREN [Suspect]
     Indication: CARDIAC FAILURE
     Dosage: CODE NOT BROKEN
     Route: 048
     Dates: start: 20100915
  2. BLINDED ENALAPRIL [Suspect]
     Indication: CARDIAC FAILURE
     Dosage: CODE NOT BROKEN
     Route: 048
     Dates: start: 20100915
  3. BLINDED NO TREATMENT RECEIVED [Suspect]
     Indication: CARDIAC FAILURE
     Dosage: CODE NOT BROKEN
     Route: 048
     Dates: start: 20100915
  4. CIMETIDINE [Concomitant]
     Indication: PROPHYLAXIS
     Dosage: 300 MG, QD
     Dates: start: 20100915
  5. SPIRONOLACTONE [Concomitant]
     Indication: CARDIAC FAILURE
     Dosage: 25 MG, QD
     Dates: start: 20100811
  6. ASPIRIN [Concomitant]
     Indication: EMBOLISM VENOUS
     Dosage: 100 MG, QD
     Dates: start: 20120611
  7. FUROSEMIDE [Concomitant]
     Indication: CARDIAC FAILURE
     Dosage: 20 MG, QD
     Dates: start: 20100526
  8. ALLOPURINOL [Concomitant]
     Indication: GOUT
     Dosage: 100 MG, QD
     Dates: start: 20130509
  9. NICORANDIL [Concomitant]
     Indication: ANGINA PECTORIS
     Dosage: 5 MG, BID
  10. CARVEDILOL [Concomitant]
     Indication: CARDIAC FAILURE
     Dosage: 25 MG, BID
     Dates: start: 20100526

REACTIONS (6)
  - Cellulitis [Not Recovered/Not Resolved]
  - Haematoma [Recovered/Resolved]
  - Swelling [Recovered/Resolved]
  - Pain [Recovered/Resolved]
  - Compartment syndrome [Recovered/Resolved]
  - Road traffic accident [Recovered/Resolved]
